FAERS Safety Report 5051367-5 (Version None)
Quarter: 2006Q3

REPORT INFORMATION
  Report Type: 
  Country: None (occurrence: None)
  Receive Date: 20060710
  Receipt Date: 20060628
  Transmission Date: 20061208
  Serious: Yes (Hospitalization)
  Sender: FDA-Public Use
  Company Number: 2006058795

PATIENT
  Age: 71 Year
  Sex: Male
  Weight: 86.1834 kg

DRUGS (1)
  1. BEXTRA [Suspect]
     Indication: ILL-DEFINED DISORDER
     Dosage: 20 MG (20 MG, 1 IN 1 D)

REACTIONS (3)
  - CEREBROVASCULAR ACCIDENT [None]
  - DISTURBANCE IN ATTENTION [None]
  - TRANSIENT ISCHAEMIC ATTACK [None]
